FAERS Safety Report 20176928 (Version 1)
Quarter: 2021Q4

REPORT INFORMATION
  Report Type: Spontaneous
  Country: CA (occurrence: CA)
  Receive Date: 20211213
  Receipt Date: 20211213
  Transmission Date: 20220303
  Serious: Yes (Other)
  Sender: FDA-Public Use
  Company Number: CA-NOVARTISPH-NVSC2021CA283337

PATIENT

DRUGS (1)
  1. AZARGA [Suspect]
     Active Substance: BRINZOLAMIDE\TIMOLOL MALEATE
     Indication: Intraocular pressure increased
     Dosage: 2 DRP, QD
     Route: 047

REACTIONS (3)
  - Sleep disorder [Unknown]
  - Gait inability [Unknown]
  - Pain [Unknown]
